FAERS Safety Report 13924979 (Version 1)
Quarter: 2017Q3

REPORT INFORMATION
  Report Type: Not Available
  Country: SE (occurrence: SE)
  Receive Date: 20170831
  Receipt Date: 20170831
  Transmission Date: 20171127
  Serious: Yes (Death)
  Sender: FDA-Public Use
  Company Number: SE-ANIPHARMA-2017-SE-000010

PATIENT
  Age: 55 Year
  Sex: Male

DRUGS (2)
  1. CITALOPRAM [Suspect]
     Active Substance: CITALOPRAM HYDROBROMIDE
  2. LITHIUM CARBONATE (NON-SPECIFIC) [Suspect]
     Active Substance: LITHIUM

REACTIONS (9)
  - Cardiomegaly [Fatal]
  - Myocardial fibrosis [Fatal]
  - Death [Fatal]
  - Renal disorder [Fatal]
  - Lipomatosis [Fatal]
  - Brain oedema [Fatal]
  - Toxicity to various agents [Fatal]
  - Respiratory tract haemorrhage [Fatal]
  - Gastrointestinal haemorrhage [Fatal]
